FAERS Safety Report 9410717 (Version 1)
Quarter: 2013Q3

REPORT INFORMATION
  Report Type: Report from Study
  Country: US (occurrence: US)
  Receive Date: 20130719
  Receipt Date: 20130719
  Transmission Date: 20140515
  Serious: Yes (Other)
  Sender: FDA-Public Use
  Company Number: US-US-EMD SERONO, INC.-7224170

PATIENT
  Age: 14 Year
  Sex: Male
  Weight: 42 kg

DRUGS (7)
  1. SAIZEN [(SOMATROPIN (RDNA ORIGIN) FOR INJECTION)] [Suspect]
     Indication: BODY HEIGHT BELOW NORMAL
     Route: 058
     Dates: start: 20120609
  2. SAIZEN [(SOMATROPIN (RDNA ORIGIN) FOR INJECTION)] [Suspect]
     Indication: FAILURE TO THRIVE
     Route: 058
  3. ZOFRAN                             /00955301/ [Concomitant]
     Indication: NAUSEA
  4. ZOFRAN                             /00955301/ [Concomitant]
     Indication: VOMITING
  5. HUMALOG                            /00030501/ [Concomitant]
     Indication: TYPE 1 DIABETES MELLITUS
     Dosage: USE UPTO 75 UNITS DAILY VIA PUMP
  6. GLUCAGON [Concomitant]
     Indication: HYPOGLYCAEMIA
  7. EMLA                               /00675501/ [Concomitant]
     Indication: PRODUCT USED FOR UNKNOWN INDICATION

REACTIONS (4)
  - Diabetes mellitus inadequate control [Not Recovered/Not Resolved]
  - Autoimmune thyroiditis [Unknown]
  - Blood cholesterol increased [Unknown]
  - Blood triglycerides increased [Unknown]
